FAERS Safety Report 17093331 (Version 1)
Quarter: 2019Q4

REPORT INFORMATION
  Report Type: Spontaneous
  Country: US (occurrence: US)
  Receive Date: 20191129
  Receipt Date: 20191129
  Transmission Date: 20200122
  Serious: No
  Sender: FDA-Public Use
  Company Number: US-009507513-1911USA001217

PATIENT
  Sex: Female

DRUGS (2)
  1. LYRICA [Concomitant]
     Active Substance: PREGABALIN
     Indication: NEURALGIA
     Dosage: 200 MILLIGRAM, TID
     Route: 048
     Dates: start: 20100901
  2. ZOCOR [Suspect]
     Active Substance: SIMVASTATIN

REACTIONS (1)
  - Drug hypersensitivity [Unknown]
